FAERS Safety Report 5830731-8 (Version None)
Quarter: 2008Q3

REPORT INFORMATION
  Report Type: 
  Country: None (occurrence: None)
  Receive Date: 20080801
  Receipt Date: 20071029
  Transmission Date: 20090109
  Serious: No
  Sender: FDA-Public Use
  Company Number: US-BRISTOL-MYERS SQUIBB COMPANY-13960588

PATIENT
  Age: 64 Year
  Sex: Female
  Weight: 103 kg

DRUGS (8)
  1. COUMADIN [Suspect]
  2. NORVASC [Concomitant]
  3. LASIX [Concomitant]
  4. PREVACID [Concomitant]
  5. DILAUDID [Concomitant]
  6. VALIUM [Concomitant]
  7. RISTORIL [Concomitant]
  8. PREDNISONE [Concomitant]

REACTIONS (1)
  - INTERNATIONAL NORMALISED RATIO INCREASED [None]
